FAERS Safety Report 7097953-2 (Version None)
Quarter: 2010Q4

REPORT INFORMATION
  Report Type: 
  Country: None (occurrence: None)
  Receive Date: 20101112
  Receipt Date: 20101101
  Transmission Date: 20110411
  Serious: Yes (Other)
  Sender: FDA-Public Use
  Company Number: JP-JNJFOC-20101005041

PATIENT
  Age: 40 Year
  Sex: Male

DRUGS (7)
  1. LEVOFLOXACIN [Suspect]
     Indication: ANTIBIOTIC PROPHYLAXIS
     Route: 065
  2. FLUCONAZOLE [Suspect]
     Indication: ANTIBIOTIC PROPHYLAXIS
     Route: 065
  3. SULFAMETHOXAZOLE AND TRIMETHOPRIM [Suspect]
     Indication: ANTIBIOTIC PROPHYLAXIS
     Route: 065
  4. VANCOMYCIN [Suspect]
     Indication: ANTIBIOTIC PROPHYLAXIS
     Route: 065
  5. VANCOMYCIN [Suspect]
     Route: 065
  6. VANCOMYCIN [Suspect]
     Route: 065
  7. VANCOMYCIN [Suspect]
     Route: 065

REACTIONS (5)
  - BACTERIAL DIARRHOEA [None]
  - BLOOD URINE PRESENT [None]
  - CLOSTRIDIAL INFECTION [None]
  - HAEMATOCHEZIA [None]
  - PYREXIA [None]
